FAERS Safety Report 7191252-6 (Version None)
Quarter: 2010Q4

REPORT INFORMATION
  Report Type: 
  Country: None (occurrence: None)
  Receive Date: 20101223
  Receipt Date: 20100812
  Transmission Date: 20110411
  Serious: No
  Sender: FDA-Public Use
  Company Number: US-AMGEN-KDL431007

PATIENT

DRUGS (6)
  1. ENBREL [Suspect]
     Indication: PRODUCT USED FOR UNKNOWN INDICATION
     Dosage: 50 MG, QWK
     Route: 058
  2. METHOTREXATE [Concomitant]
  3. IBUPROFEN [Concomitant]
     Dosage: 400 MG, UNK
  4. LEVOTHYROXINE SODIUM [Concomitant]
     Dosage: 100 A?G, UNK
  5. OMEPRAZOLE [Concomitant]
     Dosage: 10 MG, UNK
  6. NORTHISTERONE ACETATE/ETHINYLOESTRADIOL [Concomitant]
     Dosage: UNK UNK, UNK

REACTIONS (2)
  - INJECTION SITE PRURITUS [None]
  - INJECTION SITE URTICARIA [None]
